FAERS Safety Report 5657762-5 (Version None)
Quarter: 2008Q1

REPORT INFORMATION
  Report Type: 
  Country: None (occurrence: None)
  Receive Date: 20080305
  Receipt Date: 20080218
  Transmission Date: 20080703
  Serious: Yes (Hospitalization)
  Sender: FDA-Public Use
  Company Number: DSJ-2008-01748

PATIENT
  Age: 78 Year
  Sex: Female
  Weight: 63 kg

DRUGS (10)
  1. OLMESARTAN MEDOXOMIL [Suspect]
     Indication: ESSENTIAL HYPERTENSION
     Dosage: 20 MG (20 MG, 1 IN 1 D), PER ORAL
     Route: 048
     Dates: start: 20060320
  2. LIVALO [Concomitant]
  3. DIOVAN [Concomitant]
  4. OMEPRAL (OMEPRAZOLE) (OMEPRAZOLE) [Concomitant]
  5. BAYASPIRIN (ACETYLSALICYLIC ACID) (ACETYLSALICYLIC ACID) [Concomitant]
  6. ADALAT CC [Concomitant]
  7. SELOKEN 20 (METOPROLOL TARTRATE) (METOPROLOL TARTRATE) [Concomitant]
  8. CARDENALIN (DOXAZOSIN MESILATE) (DOXAZOSIN MESILATE) [Concomitant]
  9. GASTER (FAMOTIDINE) (FAMOTIDINE) [Concomitant]
  10. LASIX [Concomitant]

REACTIONS (2)
  - CARDIAC FAILURE CONGESTIVE [None]
  - SICK SINUS SYNDROME [None]
